FAERS Safety Report 21038899 (Version 1)
Quarter: 2022Q3

REPORT INFORMATION
  Report Type: Report from Study
  Country: US (occurrence: US)
  Receive Date: 20220704
  Receipt Date: 20220704
  Transmission Date: 20221026
  Serious: Yes (Other)
  Sender: FDA-Public Use
  Company Number: US-EXELIXIS-CABO-22052405

PATIENT
  Sex: Male

DRUGS (2)
  1. CABOMETYX [Suspect]
     Active Substance: CABOZANTINIB S-MALATE
     Indication: Renal cancer
     Dosage: 40 MG, QD
     Route: 048
     Dates: start: 20210716
  2. EVEROLIMUS [Concomitant]
     Active Substance: EVEROLIMUS
     Dosage: UNK

REACTIONS (2)
  - Unresponsive to stimuli [Unknown]
  - Nausea [Unknown]
